FAERS Safety Report 11820687 (Version 1)
Quarter: 2015Q4

REPORT INFORMATION
  Report Type: Spontaneous
  Country: US (occurrence: US)
  Receive Date: 20151210
  Receipt Date: 20151210
  Transmission Date: 20160305
  Serious: No
  Sender: FDA-Public Use
  Company Number: US-JNJFOC-20150712689

PATIENT
  Age: 70 Year
  Sex: Female

DRUGS (4)
  1. DIOVAN [Concomitant]
     Active Substance: VALSARTAN
  2. HUMALOG [Concomitant]
     Active Substance: INSULIN LISPRO
  3. ZETIA [Concomitant]
     Active Substance: EZETIMIBE
  4. IMBRUVICA [Suspect]
     Active Substance: IBRUTINIB
     Indication: LYMPHOMA
     Route: 048
     Dates: start: 20150514

REACTIONS (3)
  - Off label use [Not Recovered/Not Resolved]
  - Constipation [Unknown]
  - Anxiety [Unknown]

NARRATIVE: CASE EVENT DATE: 20150514
